FAERS Safety Report 25504089 (Version 2)
Quarter: 2025Q4

REPORT INFORMATION
  Report Type: Report from Study
  Country: GB (occurrence: GB)
  Receive Date: 20250702
  Receipt Date: 20251002
  Transmission Date: 20260117
  Serious: Yes (Hospitalization)
  Sender: ROCHE
  Company Number: GB-ROCHE-10000275888

PATIENT
  Sex: Female

DRUGS (1)
  1. TOCILIZUMAB [Suspect]
     Active Substance: TOCILIZUMAB
     Indication: Rheumatoid arthritis
     Route: 058
     Dates: start: 20250609

REACTIONS (7)
  - Pain [Unknown]
  - Gait disturbance [Unknown]
  - Fall [Unknown]
  - Contusion [Recovering/Resolving]
  - Erythema [Unknown]
  - Gingival abscess [Unknown]
  - Tooth disorder [Unknown]
